FAERS Safety Report 25720469 (Version 2)
Quarter: 2025Q4

REPORT INFORMATION
  Report Type: Spontaneous
  Country: US (occurrence: US)
  Receive Date: 20250825
  Receipt Date: 20251001
  Transmission Date: 20260117
  Serious: No
  Sender: ALEXION PHARMACEUTICALS
  Company Number: US-AstraZeneca-CH-00934873AP

PATIENT
  Age: 59 Year
  Sex: Female

DRUGS (2)
  1. FASENRA [Suspect]
     Active Substance: BENRALIZUMAB
     Dosage: 30 MILLIGRAM PER MILLILITRE
     Route: 065
  2. FASENRA [Suspect]
     Active Substance: BENRALIZUMAB

REACTIONS (7)
  - Product dose omission issue [Unknown]
  - Accidental exposure to product [Unknown]
  - Insurance issue [Unknown]
  - Illness [Unknown]
  - Upper respiratory tract infection [Unknown]
  - Application site laceration [Unknown]
  - Application site haemorrhage [Unknown]
